FAERS Safety Report 7531390-9 (Version None)
Quarter: 2011Q2

REPORT INFORMATION
  Report Type: 
  Country: None (occurrence: None)
  Receive Date: 20110608
  Receipt Date: 20110525
  Transmission Date: 20111010
  Serious: Yes (Other)
  Sender: FDA-Public Use
  Company Number: PHHY2011CA26273

PATIENT
  Sex: Male

DRUGS (1)
  1. SANDOSTATIN LAR [Suspect]
     Indication: METASTATIC CARCINOID TUMOUR
     Dosage: 20MG EVERY 4 WEEKS
     Route: 030
     Dates: start: 20101028

REACTIONS (3)
  - HEART RATE IRREGULAR [None]
  - FLATULENCE [None]
  - DIARRHOEA [None]
